FAERS Safety Report 7892986-8 (Version None)
Quarter: 2011Q4

REPORT INFORMATION
  Report Type: 
  Country: None (occurrence: None)
  Receive Date: 20111104
  Receipt Date: 20111101
  Transmission Date: 20120403
  Serious: Yes (Other)
  Sender: FDA-Public Use
  Company Number: US-ABBOTT-11P-163-0731302-00

PATIENT
  Sex: Female
  Weight: 83.536 kg

DRUGS (23)
  1. LIPITOR [Concomitant]
     Indication: BLOOD CHOLESTEROL INCREASED
  2. MSM [Concomitant]
     Indication: ARTHRITIS
  3. NIASPAN [Concomitant]
     Indication: HIGH DENSITY LIPOPROTEIN DECREASED
  4. VITAMIN D [Concomitant]
     Indication: VITAMIN SUPPLEMENTATION
  5. ESTALAPRAM [Concomitant]
     Indication: INSOMNIA
  6. IBUPROFEN [Concomitant]
     Indication: ARTHRITIS
  7. NASACORT [Concomitant]
     Indication: HYPERSENSITIVITY
     Dosage: NASAL SPRAY
  8. ALBUTEROL [Concomitant]
     Indication: ASTHMA
  9. VERAPAMIL [Concomitant]
     Indication: AFFECTIVE DISORDER
  10. PRILOSEC [Concomitant]
     Indication: DYSPEPSIA
  11. IBUPROFEN [Concomitant]
     Indication: SCOLIOSIS
  12. IBUPROFEN [Concomitant]
     Indication: PAIN
  13. ASTELIN [Concomitant]
     Indication: HYPERSENSITIVITY
  14. VERAPAMIL [Concomitant]
     Indication: BLOOD PRESSURE
     Dosage: SR
  15. POTASSIUM [Concomitant]
     Indication: MINERAL SUPPLEMENTATION
  16. SYNTHROID [Suspect]
     Dates: start: 20000101
  17. SYNTHROID [Suspect]
     Indication: HYPOTHYROIDISM
     Dates: start: 19950101
  18. STEROID INJECTION TO NECK [Suspect]
     Indication: NERVE COMPRESSION
     Dates: start: 20100501, end: 20100501
  19. GLUCOSAMINE [Concomitant]
     Indication: ARTHRITIS
  20. MULTI-VITAMIN [Concomitant]
     Indication: VITAMIN SUPPLEMENTATION
  21. CALCIUM [Concomitant]
     Indication: BONE DISORDER
  22. QVAR 40 [Concomitant]
     Indication: ASTHMA
  23. VASERETIC [Concomitant]
     Indication: DIURETIC THERAPY

REACTIONS (21)
  - PAIN IN EXTREMITY [None]
  - FALL [None]
  - VISUAL IMPAIRMENT [None]
  - JOINT SWELLING [None]
  - NECK PAIN [None]
  - SINUS DISORDER [None]
  - NODULE [None]
  - ABNORMAL DREAMS [None]
  - CARDIAC FAILURE [None]
  - FEELING ABNORMAL [None]
  - PANIC ATTACK [None]
  - HEART RATE DECREASED [None]
  - BLOOD THYROID STIMULATING HORMONE INCREASED [None]
  - SUPRAVENTRICULAR TACHYCARDIA [None]
  - OEDEMA PERIPHERAL [None]
  - GAIT DISTURBANCE [None]
  - ANXIETY [None]
  - MYALGIA [None]
  - NERVE COMPRESSION [None]
  - ROTATOR CUFF SYNDROME [None]
  - DYSPNOEA [None]
